FAERS Safety Report 5313336-7 (Version None)
Quarter: 2007Q2

REPORT INFORMATION
  Report Type: 
  Country: None (occurrence: None)
  Receive Date: 20070501
  Receipt Date: 20070424
  Transmission Date: 20071010
  Serious: Yes (Death, Life-Threatening, Hospitalization, Disabling)
  Sender: FDA-Public Use
  Company Number: BE-ELI_LILLY_AND_COMPANY-BE200703004442

PATIENT
  Age: 69 Year
  Sex: Male
  Weight: 68 kg

DRUGS (4)
  1. GEMZAR [Suspect]
     Indication: LUNG ADENOCARCINOMA STAGE III
     Dosage: 1 G/M2 + 750 MG/M2 D1 AND D8 EVERY 3 WEEKS
     Route: 042
     Dates: start: 20050809, end: 20050921
  2. THERAPEUTIC RADIOPHARMACEUTICALS [Concomitant]
  3. TAXOL [Concomitant]
     Dosage: 175 MG/M2, UNK
     Dates: start: 20050802, end: 20050921
  4. CARBOPLATIN [Concomitant]
     Dosage: AUC
     Dates: start: 20050802, end: 20050921

REACTIONS (1)
  - RADIATION PNEUMONITIS [None]
